FAERS Safety Report 6035454-0 (Version None)
Quarter: 2009Q1

REPORT INFORMATION
  Report Type: 
  Country: None (occurrence: None)
  Receive Date: 20090112
  Receipt Date: 20090112
  Transmission Date: 20090719
  Serious: No
  Sender: FDA-Public Use
  Company Number: None

PATIENT
  Age: 35 Year
  Sex: Female
  Weight: 59 kg

DRUGS (2)
  1. MIRENA [Suspect]
  2. . [Concomitant]

REACTIONS (10)
  - CONGENITAL ANOMALY IN OFFSPRING [None]
  - DRUG EXPOSURE BEFORE PREGNANCY [None]
  - FALLOPIAN TUBE OBSTRUCTION [None]
  - INFERTILITY [None]
  - IUCD COMPLICATION [None]
  - IUD MIGRATION [None]
  - PAIN [None]
  - PREGNANCY [None]
  - THERAPEUTIC RESPONSE DECREASED [None]
  - UTERINE RUPTURE [None]
